FAERS Safety Report 9191691 (Version 2)
Quarter: 2013Q2

REPORT INFORMATION
  Report Type: Spontaneous
  Country: US (occurrence: US)
  Receive Date: 20130326
  Receipt Date: 20130421
  Transmission Date: 20140414
  Serious: No
  Sender: FDA-Public Use
  Company Number: US-009507513-1303USA009879

PATIENT
  Sex: Male

DRUGS (1)
  1. COPPERTONE SENSITIVE SKIN LOTION SPF-50 [Suspect]
     Dosage: UNK, UNKNOWN
     Route: 061

REACTIONS (1)
  - Seborrhoea [Unknown]
